FAERS Safety Report 4882747-6 (Version None)
Quarter: 2006Q1

REPORT INFORMATION
  Report Type: 
  Country: None (occurrence: None)
  Receive Date: 20060117
  Receipt Date: 20050228
  Transmission Date: 20060701
  Serious: Yes (Hospitalization)
  Sender: FDA-Public Use
  Company Number: US-MERCK-0503USA00231

PATIENT
  Age: 56 Year
  Sex: Male
  Weight: 91 kg

DRUGS (7)
  1. VIOXX [Suspect]
     Route: 048
     Dates: start: 20030601, end: 20031117
  2. PLAVIX [Concomitant]
     Route: 065
  3. NORVASC [Concomitant]
     Route: 065
  4. ATACAND [Concomitant]
     Route: 065
  5. LIPITOR [Concomitant]
     Route: 065
  6. ACTOS [Concomitant]
     Route: 065
  7. INSULIN [Concomitant]
     Route: 065

REACTIONS (7)
  - ACUTE MYOCARDIAL INFARCTION [None]
  - CORONARY ARTERY DISEASE [None]
  - PROSTATE EXAMINATION ABNORMAL [None]
  - PULMONARY OEDEMA [None]
  - PYREXIA [None]
  - RENAL FAILURE [None]
  - SKIN ULCER [None]
